FAERS Safety Report 5013436-5 (Version None)
Quarter: 2006Q2

REPORT INFORMATION
  Report Type: 
  Country: None (occurrence: None)
  Receive Date: 20060525
  Receipt Date: 20060508
  Transmission Date: 20061013
  Serious: Yes (Hospitalization)
  Sender: FDA-Public Use
  Company Number: US200604000974

PATIENT
  Age: 92 Year
  Sex: Female

DRUGS (2)
  1. FORTEO [Suspect]
     Indication: BONE DISORDER
     Dosage: 20 UG, DAILY (1/D),
     Dates: start: 20060201
  2. FORTEO PEN (250MCG/ML) (FORTEO PEN 150MCG/ML (3ML)) PEN, DISPOSABLE [Concomitant]

REACTIONS (3)
  - DIVERTICULITIS [None]
  - GASTROINTESTINAL STOMA COMPLICATION [None]
  - SURGICAL PROCEDURE REPEATED [None]
